FAERS Safety Report 4479385-6 (Version None)
Quarter: 2004Q4

REPORT INFORMATION
  Report Type: 
  Country: None (occurrence: None)
  Receive Date: 20041020
  Receipt Date: 20040914
  Transmission Date: 20050328
  Serious: Yes (Life-Threatening)
  Sender: FDA-Public Use
  Company Number: 200412923JP

PATIENT
  Age: 68 Year
  Sex: Male

DRUGS (7)
  1. TAXOTERE [Suspect]
     Indication: LUNG NEOPLASM MALIGNANT
     Route: 041
     Dates: start: 20040908, end: 20040908
  2. PARAPLATIN [Suspect]
     Indication: LUNG NEOPLASM MALIGNANT
     Route: 041
     Dates: start: 20040908, end: 20040908
  3. DECADRON [Concomitant]
     Indication: PROPHYLAXIS
     Route: 041
     Dates: start: 20040908, end: 20040908
  4. DECADRON [Concomitant]
     Indication: SHOCK
     Route: 041
     Dates: start: 20040908, end: 20040908
  5. NASEA [Concomitant]
     Indication: NAUSEA
     Route: 041
     Dates: start: 20040908, end: 20040913
  6. GLYBURIDE [Concomitant]
     Indication: DIABETES MELLITUS
     Route: 048
  7. AMLODIN [Concomitant]
     Indication: HYPERTENSION
     Route: 048

REACTIONS (1)
  - RHABDOMYOLYSIS [None]
